FAERS Safety Report 8094765 (Version 51)
Quarter: 2024Q1

REPORT INFORMATION
  Report Type: Report from Study
  Country: CA (occurrence: CA)
  Receive Date: 20110817
  Receipt Date: 20240117
  Transmission Date: 20240410
  Serious: Yes (Hospitalization)
  Sender: FDA-Public Use
  Company Number: PHHY2011CA71948

PATIENT
  Age: 49 Year
  Sex: Female

DRUGS (15)
  1. SANDOSTATIN LAR DEPOT [Suspect]
     Active Substance: OCTREOTIDE ACETATE
     Indication: Acromegaly
     Dosage: 30 MG, QMO (EVERY 4 WEEKS)
     Route: 030
     Dates: start: 19970826, end: 201208
  2. SANDOSTATIN LAR DEPOT [Suspect]
     Active Substance: OCTREOTIDE ACETATE
     Dosage: 30 MG, QMO
     Route: 030
     Dates: start: 20110530
  3. SANDOSTATIN LAR DEPOT [Suspect]
     Active Substance: OCTREOTIDE ACETATE
     Dosage: 30 MG, QMO
     Route: 065
     Dates: start: 20150202
  4. SANDOSTATIN LAR DEPOT [Suspect]
     Active Substance: OCTREOTIDE ACETATE
     Dosage: UNK
     Route: 030
     Dates: end: 201511
  5. SANDOSTATIN LAR DEPOT [Suspect]
     Active Substance: OCTREOTIDE ACETATE
     Dosage: 30 MG, UNK
     Route: 030
     Dates: start: 20160418
  6. SANDOSTATIN LAR DEPOT [Suspect]
     Active Substance: OCTREOTIDE ACETATE
     Dosage: 30 MG, QMO
     Route: 030
  7. SANDOSTATIN LAR DEPOT [Suspect]
     Active Substance: OCTREOTIDE ACETATE
     Dosage: 30 MG, QMO
     Route: 030
     Dates: start: 20220607
  8. METFORMIN [Concomitant]
     Active Substance: METFORMIN HYDROCHLORIDE
     Indication: Product used for unknown indication
     Dosage: 750 MG, TID
     Route: 048
     Dates: start: 2001
  9. METFORMIN [Concomitant]
     Active Substance: METFORMIN HYDROCHLORIDE
     Dosage: 850 MG, TID
     Route: 048
     Dates: start: 2001
  10. ACCUPRIL [Concomitant]
     Active Substance: QUINAPRIL HYDROCHLORIDE
     Indication: Blood pressure measurement
     Dosage: UNK
     Route: 065
  11. BROMOCRIPTINE [Concomitant]
     Active Substance: BROMOCRIPTINE
     Indication: Product used for unknown indication
     Dosage: 5 MG, TID
     Route: 048
     Dates: start: 2001
  12. BROMOCRIPTINE [Concomitant]
     Active Substance: BROMOCRIPTINE
     Dosage: 10 MG, BID
     Route: 048
  13. GLYBURIDE [Concomitant]
     Active Substance: GLYBURIDE
     Indication: Product used for unknown indication
     Dosage: 5 MG, BID
     Route: 048
     Dates: start: 2008
  14. SOMAVERT [Concomitant]
     Active Substance: PEGVISOMANT
     Indication: Acromegaly
     Dosage: UNK
     Route: 065
  15. SYNTHROID [Concomitant]
     Active Substance: LEVOTHYROXINE SODIUM
     Indication: Product used for unknown indication
     Dosage: 0.112 MG, QD
     Route: 048

REACTIONS (48)
  - Abdominal hernia [Unknown]
  - Dyspnoea [Unknown]
  - Iron deficiency anaemia [Recovered/Resolved]
  - Blood iron decreased [Recovered/Resolved]
  - Uterine leiomyoma [Recovered/Resolved]
  - Heavy menstrual bleeding [Recovered/Resolved]
  - Takayasu^s arteritis [Recovered/Resolved]
  - Atrial fibrillation [Recovered/Resolved]
  - Muscle spasms [Unknown]
  - Back pain [Unknown]
  - Anxiety [Unknown]
  - Blood cholesterol increased [Unknown]
  - Blood pressure increased [Unknown]
  - Pain in extremity [Unknown]
  - Gait disturbance [Unknown]
  - Fall [Unknown]
  - Stress [Unknown]
  - Tension [Unknown]
  - Intermenstrual bleeding [Unknown]
  - Cough [Unknown]
  - Fatigue [Unknown]
  - Insomnia [Unknown]
  - Musculoskeletal stiffness [Unknown]
  - Influenza [Recovering/Resolving]
  - Paraesthesia [Unknown]
  - Oropharyngeal pain [Unknown]
  - Mass [Unknown]
  - Blood test abnormal [Unknown]
  - Nasopharyngitis [Unknown]
  - Nasal congestion [Unknown]
  - Pain [Unknown]
  - Rash [Unknown]
  - Constipation [Unknown]
  - Abdominal distension [Unknown]
  - Abdominal pain [Recovering/Resolving]
  - Abdominal discomfort [Unknown]
  - Abdominal pain upper [Unknown]
  - Asthenia [Unknown]
  - Decreased appetite [Unknown]
  - Headache [Unknown]
  - Nausea [Unknown]
  - Injection site mass [Unknown]
  - Injection site pain [Unknown]
  - Injection site haemorrhage [Recovered/Resolved]
  - Injection site haemorrhage [Unknown]
  - Underdose [Unknown]
  - Needle issue [Unknown]
  - Product dose omission issue [Unknown]

NARRATIVE: CASE EVENT DATE: 20110803
